FAERS Safety Report 7503420-1 (Version None)
Quarter: 2011Q2

REPORT INFORMATION
  Report Type: 
  Country: None (occurrence: None)
  Receive Date: 20110525
  Receipt Date: 20110520
  Transmission Date: 20111010
  Serious: Yes (Hospitalization)
  Sender: FDA-Public Use
  Company Number: D0071470A

PATIENT
  Sex: Male

DRUGS (11)
  1. NITROFURANTOIN [Suspect]
  2. AMOXICILLIN AND CLAVULANATE POTASSIUM [Suspect]
  3. DOMPERIDON [Suspect]
  4. EXELON [Concomitant]
     Route: 062
  5. OMEPRAZOLE [Suspect]
  6. REQUIP [Suspect]
  7. MADOPAR DEPOT [Suspect]
  8. SEROQUEL [Suspect]
  9. ASPIRIN [Suspect]
  10. MADOPAR [Suspect]
  11. STALEVO 100 [Suspect]

REACTIONS (5)
  - GENERAL PHYSICAL HEALTH DETERIORATION [None]
  - DYSPHAGIA [None]
  - LETHARGY [None]
  - DRUG ADMINISTRATION ERROR [None]
  - HOSPITALISATION [None]
